FAERS Safety Report 9282271 (Version 2)
Quarter: 2013Q2

REPORT INFORMATION
  Report Type: Spontaneous
  Country: US (occurrence: US)
  Receive Date: 20130510
  Receipt Date: 20130528
  Transmission Date: 20140414
  Serious: No
  Sender: FDA-Public Use
  Company Number: US-PFIZER INC-2013143983

PATIENT
  Age: 66 Year
  Sex: Female
  Weight: 86.17 kg

DRUGS (4)
  1. ALPRAZOLAM [Suspect]
     Indication: ANXIETY
     Dosage: 0.25 MG (SPLITTING THE 0.5 MG TABLET INTO HALF) DAILY
     Route: 048
  2. LEVOXYL [Suspect]
     Indication: THYROID DISORDER
     Dosage: 137 UG DAILY
     Route: 048
     Dates: end: 201303
  3. SERTRALINE HCL [Suspect]
     Indication: DEPRESSION
     Dosage: 100 MG DAILY
  4. OMEPRAZOLE [Concomitant]
     Indication: GASTROOESOPHAGEAL REFLUX DISEASE
     Dosage: 40 MG DAILY

REACTIONS (6)
  - Hypothyroidism [Unknown]
  - Migraine [Recovering/Resolving]
  - Drug ineffective [Recovering/Resolving]
  - Accident [Recovering/Resolving]
  - Fear [Recovering/Resolving]
  - Crying [Recovering/Resolving]
